FAERS Safety Report 6131806-9 (Version None)
Quarter: 2009Q1

REPORT INFORMATION
  Report Type: 
  Country: None (occurrence: None)
  Receive Date: 20090325
  Receipt Date: 20090317
  Transmission Date: 20090719
  Serious: Yes (Hospitalization)
  Sender: FDA-Public Use
  Company Number: US-JNJFOC-20081001596

PATIENT
  Sex: Female
  Weight: 77.57 kg

DRUGS (1)
  1. MONONESSA [Suspect]
     Indication: CONTRACEPTION
     Dosage: ETHINYL ESTRADIOL 0.035MG/ NORGESTIMATE 0.25 MG
     Route: 048

REACTIONS (10)
  - DEEP VEIN THROMBOSIS [None]
  - DEPRESSION [None]
  - IRRITABILITY [None]
  - PATELLA FRACTURE [None]
  - PLEURAL EFFUSION [None]
  - PNEUMONIA [None]
  - RHINITIS ALLERGIC [None]
  - SLEEP DISORDER [None]
  - VAGINAL DISCHARGE [None]
  - WEIGHT INCREASED [None]
